FAERS Safety Report 10416467 (Version 1)
Quarter: 2014Q3

REPORT INFORMATION
  Report Type: Spontaneous
  Country: US (occurrence: None)
  Receive Date: 20140827
  Receipt Date: 20140827
  Transmission Date: 20150326
  Serious: Yes (Other)
  Sender: FDA-Public Use
  Company Number: None

PATIENT
  Age: 44 Year
  Sex: Female
  Weight: 84.82 kg

DRUGS (1)
  1. MEPIVACAINE [Suspect]
     Active Substance: MEPIVACAINE\MEPIVACAINE HYDROCHLORIDE
     Indication: HYPOAESTHESIA ORAL
     Dosage: INJECTION?AT THE DENTIST ?INJECTED INTO GUM

REACTIONS (10)
  - Sensation of foreign body [None]
  - Dizziness [None]
  - Swelling face [None]
  - Aphonia [None]
  - Ocular hyperaemia [None]
  - Panic reaction [None]
  - Hypersensitivity [None]
  - Drug effect decreased [None]
  - Dysphagia [None]
  - Movement disorder [None]

NARRATIVE: CASE EVENT DATE: 20140826
